FAERS Safety Report 6829875-3 (Version None)
Quarter: 2010Q3

REPORT INFORMATION
  Report Type: 
  Country: None (occurrence: None)
  Receive Date: 20100710
  Receipt Date: 20100625
  Transmission Date: 20110219
  Serious: Yes (Other)
  Sender: FDA-Public Use
  Company Number: US-JNJFOC-20100701916

PATIENT
  Sex: Female
  Weight: 61.24 kg

DRUGS (14)
  1. MOTRIN [Suspect]
     Indication: ARTHRITIS
     Route: 048
  2. MOTRIN [Suspect]
     Indication: MUSCULOSKELETAL PAIN
     Route: 048
  3. TYLENOL-500 [Suspect]
     Indication: ARTHRITIS
     Route: 048
  4. TYLENOL-500 [Suspect]
     Indication: MUSCULOSKELETAL PAIN
     Route: 048
  5. CELEBREX [Suspect]
     Indication: ARTHRITIS
     Route: 048
  6. CELEBREX [Suspect]
     Indication: MUSCULOSKELETAL PAIN
     Route: 048
  7. NORVASC [Suspect]
     Indication: ARTHRITIS
     Route: 048
  8. NORVASC [Suspect]
     Indication: MUSCULOSKELETAL PAIN
     Route: 048
  9. MOBIC [Suspect]
     Indication: ARTHRITIS
     Route: 048
  10. MOBIC [Suspect]
     Indication: MUSCULOSKELETAL PAIN
     Route: 048
  11. CIPLOX [Suspect]
     Indication: ARTHRITIS
     Route: 048
  12. CIPLOX [Suspect]
     Indication: MUSCULOSKELETAL PAIN
     Route: 048
  13. NAPROXEN [Suspect]
     Indication: ARTHRITIS
  14. NAPROXEN [Suspect]
     Indication: MUSCULOSKELETAL PAIN

REACTIONS (3)
  - ABDOMINAL DISCOMFORT [None]
  - DRUG INEFFECTIVE [None]
  - ULCER [None]
